FAERS Safety Report 8812158 (Version 2)
Quarter: 2012Q4

REPORT INFORMATION
  Report Type: Spontaneous
  Country: US (occurrence: None)
  Receive Date: 20120925
  Receipt Date: 20121024
  Transmission Date: 20130627
  Serious: Yes (Other)
  Sender: FDA-Public Use
  Company Number: 2012SA066762

PATIENT
  Age: 50 Year
  Sex: Male
  Weight: 87.89 kg

DRUGS (1)
  1. ICY HOT POWER GEL [Suspect]
     Indication: KNEE PAIN
     Route: 061
     Dates: start: 20120909, end: 20120909

REACTIONS (2)
  - Application site burn [None]
  - Application site vesicles [None]
